FAERS Safety Report 4310857-0 (Version None)
Quarter: 2004Q1

REPORT INFORMATION
  Report Type: 
  Country: None (occurrence: None)
  Receive Date: 20040304
  Receipt Date: 20040223
  Transmission Date: 20041129
  Serious: Yes (Other)
  Sender: FDA-Public Use
  Company Number: PHFR2004GB01161

PATIENT
  Age: 27 Year
  Sex: Female

DRUGS (2)
  1. TERBINAFINE HCL [Suspect]
     Indication: NAIL TINEA
     Dosage: 250MG/DAY
     Route: 048
     Dates: start: 20040107, end: 20040210
  2. MERCILON [Concomitant]
     Indication: CONTRACEPTION
     Dosage: 1 UNK/DAY
     Route: 048
     Dates: start: 20031127

REACTIONS (1)
  - METRORRHAGIA [None]
